FAERS Safety Report 14406674 (Version 8)
Quarter: 2020Q1

REPORT INFORMATION
  Report Type: Spontaneous
  Country: JP (occurrence: JP)
  Receive Date: 20180118
  Receipt Date: 20200220
  Transmission Date: 20200409
  Serious: Yes (Hospitalization, Other)
  Sender: FDA-Public Use
  Company Number: JP-009507513-1712JPN003469J

PATIENT
  Age: 69 Year
  Sex: Male
  Weight: 64 kg

DRUGS (1)
  1. KEYTRUDA [Suspect]
     Active Substance: PEMBROLIZUMAB
     Indication: LUNG ADENOCARCINOMA
     Dosage: 200 MG, Q3W
     Route: 041
     Dates: start: 20171004, end: 20171206

REACTIONS (4)
  - Deafness neurosensory [Recovering/Resolving]
  - Uveitis [Recovering/Resolving]
  - Hyperthyroidism [Not Recovered/Not Resolved]
  - Glaucoma [Recovering/Resolving]

NARRATIVE: CASE EVENT DATE: 20171115
